FAERS Safety Report 7501360-5 (Version None)
Quarter: 2011Q2

REPORT INFORMATION
  Report Type: 
  Country: None (occurrence: None)
  Receive Date: 20110524
  Receipt Date: 20110502
  Transmission Date: 20111010
  Serious: Yes (Death)
  Sender: FDA-Public Use
  Company Number: CA-CELGENEUS-028-C5013-11050280

PATIENT
  Weight: 82.8 kg

DRUGS (12)
  1. PHOSPHATE NOVARTIS [Concomitant]
     Indication: SUPPLEMENTATION THERAPY
     Dosage: 500 MILLIGRAM
     Route: 048
     Dates: start: 20110428
  2. PAMIDRONATE DISODIUM [Concomitant]
     Dosage: 90 MILLIGRAM
     Route: 051
     Dates: start: 20110421, end: 20110421
  3. COLACE [Concomitant]
     Indication: BOWEL MOVEMENT IRREGULARITY
     Dosage: 100 MILLIGRAM
     Route: 048
     Dates: start: 20110426
  4. SENOKOT [Concomitant]
     Indication: BOWEL MOVEMENT IRREGULARITY
     Route: 048
     Dates: start: 20110426
  5. LENALIDOMIDE [Suspect]
     Route: 048
     Dates: start: 20110418, end: 20110428
  6. VITAMIN D [Concomitant]
     Indication: SUPPLEMENTATION THERAPY
     Dosage: 2000 MILLIEQUIVALENTS
     Route: 048
     Dates: start: 20050101
  7. ALLOPURINOL [Concomitant]
     Indication: PROPHYLAXIS
     Dosage: 30 MILLIGRAM
     Route: 048
     Dates: start: 20110415
  8. LACTULOSE [Concomitant]
     Indication: BOWEL MOVEMENT IRREGULARITY
     Dosage: 45-30 ML
     Route: 048
     Dates: start: 20110426
  9. POTASSIUM PHOSPHATES [Concomitant]
     Dosage: 30 MILLIEQUIVALENTS
     Route: 051
     Dates: start: 20110426
  10. PREDNISONE [Concomitant]
     Dosage: 30 MILLIGRAM
     Route: 048
     Dates: start: 20110428
  11. MAGNESIUM OXIDE [Concomitant]
     Dosage: 400 MILLIGRAM
     Route: 048
     Dates: start: 20090101
  12. DILAUDID [Concomitant]
     Indication: DISCOMFORT
     Dosage: 2 MILLIGRAM
     Route: 048
     Dates: start: 20110428

REACTIONS (1)
  - DEATH [None]
